FAERS Safety Report 23787822 (Version 1)
Quarter: 2024Q2

REPORT INFORMATION
  Report Type: Spontaneous
  Country: JP (occurrence: JP)
  Receive Date: 20240426
  Receipt Date: 20240426
  Transmission Date: 20240716
  Serious: Yes (Death, Other)
  Sender: FDA-Public Use
  Company Number: JP-PFIZER INC-PV202400053659

PATIENT
  Age: 87 Year
  Sex: Female

DRUGS (1)
  1. METHOTREXATE SODIUM [Suspect]
     Active Substance: METHOTREXATE SODIUM
     Indication: Rheumatoid arthritis
     Dosage: 10 MG
     Route: 048

REACTIONS (4)
  - Diffuse large B-cell lymphoma [Fatal]
  - Glomerulonephritis rapidly progressive [Fatal]
  - Myelosuppression [Not Recovered/Not Resolved]
  - Nephropathy toxic [Not Recovered/Not Resolved]
